FAERS Safety Report 8503238 (Version 4)
Quarter: 2015Q1

REPORT INFORMATION
  Report Type: Spontaneous
  Country: JP (occurrence: JP)
  Receive Date: 20120411
  Receipt Date: 20150325
  Transmission Date: 20150721
  Serious: Yes (Other)
  Sender: FDA-Public Use
  Company Number: JP-PFIZER INC-2012083321

PATIENT
  Age: 40 Year
  Sex: Male
  Weight: 68 kg

DRUGS (10)
  1. WARFARIN [Interacting]
     Active Substance: WARFARIN
     Dosage: UNK
     Route: 048
     Dates: start: 20110908
  2. HEPARIN [Concomitant]
     Active Substance: HEPARIN SODIUM
     Dosage: UNK
  3. WARFARIN [Interacting]
     Active Substance: WARFARIN
     Dosage: 4 MG, DAILY
     Route: 048
     Dates: start: 20110923, end: 20110928
  4. VASOLAN [Concomitant]
     Active Substance: VERAPAMIL HYDROCHLORIDE
     Dosage: 120 MG, DAILY
     Dates: end: 20111004
  5. LOPRESSOR [Concomitant]
     Active Substance: METOPROLOL TARTRATE
     Dosage: 10 MG, DAILY
     Dates: end: 20111004
  6. ZYVOX [Suspect]
     Active Substance: LINEZOLID
     Indication: GRAFT INFECTION
     Dosage: 600 MG, 2X/DAY
     Route: 041
     Dates: start: 20110916, end: 20111004
  7. WARFARIN [Interacting]
     Active Substance: WARFARIN
     Dosage: 4 MG, DAILY
     Route: 048
     Dates: start: 20110913, end: 20110915
  8. WARFARIN [Interacting]
     Active Substance: WARFARIN
     Dosage: 5 MG, DAILY
     Route: 048
     Dates: start: 20110918, end: 20110920
  9. WARFARIN [Interacting]
     Active Substance: WARFARIN
     Dosage: 4.5 MG, DAILY
     Route: 048
     Dates: start: 20110916, end: 20110917
  10. TAKEPRON [Concomitant]
     Active Substance: LANSOPRAZOLE
     Dosage: 15 G, DAILY
     Dates: end: 20110923

REACTIONS (3)
  - Drug interaction [Recovered/Resolved]
  - International normalised ratio increased [Recovered/Resolved]
  - Off label use [Unknown]

NARRATIVE: CASE EVENT DATE: 20110920
